FAERS Safety Report 22299611 (Version 1)
Quarter: 2023Q2

REPORT INFORMATION
  Report Type: Spontaneous
  Country: US (occurrence: US)
  Receive Date: 20230509
  Receipt Date: 20230509
  Transmission Date: 20230722
  Serious: No
  Sender: FDA-Public Use
  Company Number: US-AMGEN-USASP2023079087

PATIENT
  Age: 74 Year
  Sex: Female

DRUGS (1)
  1. KANJINTI [Suspect]
     Active Substance: TRASTUZUMAB-ANNS
     Indication: Breast cancer
     Dosage: 659 MILLIGRAM, Q3WK
     Route: 065
     Dates: end: 2023

REACTIONS (1)
  - Scan abnormal [Unknown]

NARRATIVE: CASE EVENT DATE: 20230421
